FAERS Safety Report 7568670-7 (Version None)
Quarter: 2011Q2

REPORT INFORMATION
  Report Type: 
  Country: None (occurrence: None)
  Receive Date: 20110623
  Receipt Date: 20110622
  Transmission Date: 20111010
  Serious: Yes (Hospitalization, Other)
  Sender: FDA-Public Use
  Company Number: CH-BRISTOL-MYERS SQUIBB COMPANY-15416225

PATIENT
  Age: 30 Year
  Sex: Female
  Weight: 35 kg

DRUGS (3)
  1. XELODA [Suspect]
     Indication: GASTROOESOPHAGEAL CANCER
     Dosage: ON DAY 1-15 TAB; NO OF INF:2
     Route: 048
     Dates: start: 20101014, end: 20101118
  2. CISPLATIN [Suspect]
     Indication: GASTROOESOPHAGEAL CANCER
     Dosage: ON DAY 1 OF CYCLE NO OF INF:2
     Route: 042
     Dates: start: 20101014, end: 20101104
  3. CETUXIMAB [Suspect]
     Indication: GASTROOESOPHAGEAL CANCER
     Dosage: RECENT INF:18NOV2010; NO OF INF:3 STRENGTH:5MG/ML ONGOING NEXT 25-NOV-2010
     Route: 042
     Dates: start: 20101014

REACTIONS (1)
  - ASCITES [None]
